FAERS Safety Report 20987218 (Version 1)
Quarter: 2022Q2

REPORT INFORMATION
  Report Type: Spontaneous
  Country: CH (occurrence: None)
  Receive Date: 20220621
  Receipt Date: 20220621
  Transmission Date: 20220721
  Serious: Yes (Hospitalization, Other)
  Sender: FDA-Public Use
  Company Number: 2022A225941

PATIENT
  Age: 85 Year
  Sex: Male

DRUGS (8)
  1. NEXIUM [Interacting]
     Active Substance: ESOMEPRAZOLE MAGNESIUM
     Indication: Product used for unknown indication
     Dosage: 20 MILLIGRAM, 1/DAY
     Route: 048
     Dates: start: 20220126, end: 20220222
  2. METHOTREXATE [Interacting]
     Active Substance: METHOTREXATE
     Indication: Product used for unknown indication
     Dosage: 3 GRAM PER SQUARE METRE, ONCE3.0G/MSQ ONCE/SINGLE ADMINISTRATION
     Route: 042
     Dates: start: 20220122, end: 20220122
  3. METHOTREXATE [Interacting]
     Active Substance: METHOTREXATE
     Indication: Product used for unknown indication
     Dosage: 3 GRAM PER SQUARE METRE, ONCE3.0G/MSQ ONCE/SINGLE ADMINISTRATION
     Route: 042
     Dates: start: 20220210, end: 20220210
  4. MABTHERA [Suspect]
     Active Substance: RITUXIMAB
     Indication: Lymphoma
     Dosage: 1 DOSAGE FORM, ONCE1.0DF ONCE/SINGLE ADMINISTRATION
     Route: 042
     Dates: start: 20220210, end: 20220210
  5. GADOLINIUM [Suspect]
     Active Substance: GADOLINIUM
     Indication: Magnetic resonance imaging
     Dosage: 1 DOSAGE FORM, ONCE1.0DF ONCE/SINGLE ADMINISTRATION
     Route: 065
     Dates: start: 20220218, end: 20220218
  6. AMITRIPTYLINE [Suspect]
     Active Substance: AMITRIPTYLINE
     Indication: Product used for unknown indication
     Dosage: 25 MILLIGRAM, 1/DAY
     Route: 048
     Dates: start: 20220215, end: 20220222
  7. LAXIPEG [Concomitant]
     Indication: Product used for unknown indication
     Dosage: 1 DOSAGE FORM, 1/DAY
     Route: 048
  8. MOTILIUM [Concomitant]
     Active Substance: DOMPERIDONE
     Indication: Product used for unknown indication
     Dosage: 10 MILLIGRAM, AS NEEDED10.0MG INTERMITTENT
     Route: 048

REACTIONS (4)
  - Drug interaction [Recovering/Resolving]
  - Acute kidney injury [Recovering/Resolving]
  - Neutropenia [Recovered/Resolved]
  - Pancytopenia [Recovered/Resolved]

NARRATIVE: CASE EVENT DATE: 20220223
